FAERS Safety Report 11455179 (Version 2)
Quarter: 2015Q4

REPORT INFORMATION
  Report Type: Spontaneous
  Country: HR (occurrence: HR)
  Receive Date: 20150903
  Receipt Date: 20151012
  Transmission Date: 20160304
  Serious: Yes (Hospitalization, Other)
  Sender: FDA-Public Use
  Company Number: PHHY2015HR104618

PATIENT
  Age: 57 Year
  Sex: Male

DRUGS (1)
  1. ALLOPURINOL. [Suspect]
     Active Substance: ALLOPURINOL
     Indication: GOUT
     Dosage: 600 MG, QD
     Route: 065

REACTIONS (3)
  - Microcytic anaemia [Recovered/Resolved]
  - Copper deficiency [Recovered/Resolved]
  - Peripheral sensory neuropathy [Recovering/Resolving]
